FAERS Safety Report 6479501-0 (Version None)
Quarter: 2009Q4

REPORT INFORMATION
  Report Type: 
  Country: None (occurrence: None)
  Receive Date: 20091207
  Receipt Date: 20091207
  Transmission Date: 20100525
  Serious: Yes (Other)
  Sender: FDA-Public Use
  Company Number: None

PATIENT
  Sex: Female
  Weight: 59.8748 kg

DRUGS (13)
  1. BONIVA [Suspect]
     Indication: OSTEOPOROSIS
     Dosage: 3MG Q3MONTHS IV BOLUS
     Route: 040
     Dates: start: 20090402, end: 20090402
  2. QUINAPRIL [Concomitant]
  3. ZOLPIDEM [Concomitant]
  4. CALCITRIOL [Concomitant]
  5. CALCIUM + VIT D [Concomitant]
  6. CYCLOBENZAPRINE [Concomitant]
  7. METHADONE [Concomitant]
  8. NEXIUM [Concomitant]
  9. OMEGA 3 FATTY ACIDS [Concomitant]
  10. PRAVASTATIN [Concomitant]
  11. LEVOTHYROXINE SODIUM [Concomitant]
  12. TRAMADOL HCL [Concomitant]
  13. VITAMIN E [Concomitant]

REACTIONS (7)
  - ARTHRALGIA [None]
  - HEADACHE [None]
  - LIP SWELLING [None]
  - PRURITUS [None]
  - SKIN LESION [None]
  - SWELLING FACE [None]
  - URTICARIA [None]
